FAERS Safety Report 20027090 (Version 2)
Quarter: 2021Q4

REPORT INFORMATION
  Report Type: Spontaneous
  Country: IT (occurrence: IT)
  Receive Date: 20211103
  Receipt Date: 20211109
  Transmission Date: 20220304
  Serious: Yes (Death, Other)
  Sender: FDA-Public Use
  Company Number: IT-AMGEN-ITASP2021169641

PATIENT
  Age: 47 Year
  Sex: Male

DRUGS (6)
  1. PEGFILGRASTIM [Suspect]
     Active Substance: PEGFILGRASTIM
     Indication: Prophylaxis
     Dosage: 6 MILLIGRAM (DAY 5 AS A SUPPORT)
     Route: 058
  2. DOXORUBICIN [Concomitant]
     Active Substance: DOXORUBICIN
     Indication: Lung neoplasm malignant
     Dosage: 25 MILLIGRAM/SQ. METER, QD (DAY 1-3)
     Route: 065
  3. IFOSFAMIDE [Concomitant]
     Active Substance: IFOSFAMIDE
     Indication: Lung neoplasm malignant
     Dosage: 10 GRAM PER SQUARE METRE (OVER 4 DAYS WITH MENSA)
     Route: 065
  4. MESNA [Concomitant]
     Active Substance: MESNA
     Indication: Lung neoplasm malignant
     Dosage: 0.5 GRAM PER 100 GRAM (BEFORE IFOSFAMIDE)
     Route: 042
  5. GEMCITABINE [Concomitant]
     Active Substance: GEMCITABINE
     Indication: Lung neoplasm malignant
     Dosage: 900 MILLIGRAM/SQ. METER (ON DAY 1 AND 8)
  6. DOCETAXEL [Concomitant]
     Active Substance: DOCETAXEL
     Indication: Lung neoplasm malignant
     Dosage: 70 MILLIGRAM/SQ. METER (ON DAY 8)

REACTIONS (2)
  - Death [Fatal]
  - Sarcoma [Unknown]
